FAERS Safety Report 4425891-X (Version None)
Quarter: 2004Q3

REPORT INFORMATION
  Report Type: 
  Country: None (occurrence: None)
  Receive Date: 20040810
  Receipt Date: 20040729
  Transmission Date: 20050211
  Serious: Yes (Hospitalization, Other)
  Sender: FDA-Public Use
  Company Number: 2004-03389

PATIENT
  Age: 31 Year
  Sex: Female

DRUGS (4)
  1. NIFEDIPINE [Suspect]
     Indication: PREMATURE LABOUR
     Dosage: 20MG Q20MIN X 3, ORAL
     Route: 048
  2. NIFEDIPINE [Suspect]
     Indication: TOCOLYSIS
     Dosage: 20MG Q20MIN X 3, ORAL
     Route: 048
  3. BETAMETHASONE [Concomitant]
  4. AMOXICILLIN [Concomitant]

REACTIONS (2)
  - DRUG EXPOSURE DURING PREGNANCY [None]
  - HYPOXIA [None]
